FAERS Safety Report 6752497-X (Version None)
Quarter: 2010Q2

REPORT INFORMATION
  Report Type: 
  Country: None (occurrence: None)
  Receive Date: 20100601
  Receipt Date: 20100601
  Transmission Date: 20101027
  Serious: Yes (Other)
  Sender: FDA-Public Use
  Company Number: None

PATIENT
  Sex: Male
  Weight: 93.8946 kg

DRUGS (2)
  1. CLARAVIS [Suspect]
     Indication: ACNE CYSTIC
     Dosage: 40 MG 2X DAILY PO
     Route: 048
     Dates: start: 20100115, end: 20100309
  2. CLARAVIS [Suspect]
     Indication: ACNE CYSTIC
     Dosage: 10 MG 1X DAILY PO
     Route: 048
     Dates: start: 20100115, end: 20100309

REACTIONS (3)
  - CONDITION AGGRAVATED [None]
  - GENITAL HERPES [None]
  - ORAL HERPES [None]
